FAERS Safety Report 12619379 (Version 2)
Quarter: 2016Q4

REPORT INFORMATION
  Report Type: Spontaneous
  Country: US (occurrence: US)
  Receive Date: 20160803
  Receipt Date: 20161128
  Transmission Date: 20170207
  Serious: Yes (Hospitalization)
  Sender: FDA-Public Use
  Company Number: US-UCBSA-2016028561

PATIENT
  Age: 64 Year
  Sex: Female

DRUGS (1)
  1. CIMZIA [Suspect]
     Active Substance: CERTOLIZUMAB PEGOL
     Indication: RHEUMATOID ARTHRITIS
     Dosage: 400 MG, MONTHLY (QM)
     Route: 058

REACTIONS (5)
  - Sinusitis [Unknown]
  - Nasopharyngitis [Unknown]
  - Immunodeficiency [Unknown]
  - Cellulitis [Unknown]
  - Influenza [Unknown]

NARRATIVE: CASE EVENT DATE: 201605
